FAERS Safety Report 6584985-3 (Version None)
Quarter: 2010Q1

REPORT INFORMATION
  Report Type: 
  Country: None (occurrence: None)
  Receive Date: 20100217
  Receipt Date: 20100205
  Transmission Date: 20100710
  Serious: Yes (Other)
  Sender: FDA-Public Use
  Company Number: DE-ELI_LILLY_AND_COMPANY-DE200912005217

PATIENT
  Sex: Male

DRUGS (1)
  1. ZYPADHERA [Suspect]
     Dosage: 450 MG, OTHER
     Route: 030
     Dates: start: 20091201

REACTIONS (7)
  - CONFUSIONAL STATE [None]
  - DELIRIUM [None]
  - DYSARTHRIA [None]
  - HYPERHIDROSIS [None]
  - MALAISE [None]
  - PSYCHOMOTOR HYPERACTIVITY [None]
  - TACHYCARDIA [None]
